FAERS Safety Report 4365389-0 (Version None)
Quarter: 2004Q2

REPORT INFORMATION
  Report Type: 
  Country: None (occurrence: None)
  Receive Date: 20040525
  Receipt Date: 20040512
  Transmission Date: 20050107
  Serious: Yes (Death, Hospitalization)
  Sender: FDA-Public Use
  Company Number: 04P-020-0261086-00

PATIENT
  Sex: Male

DRUGS (3)
  1. KALETRA [Suspect]
     Indication: HIV INFECTION
     Dosage: ORAL
     Route: 048
  2. PRAVASTATIN [Concomitant]
  3. BEZAFIBRATE [Concomitant]

REACTIONS (3)
  - DIARRHOEA [None]
  - MEDICATION ERROR [None]
  - PAIN [None]
